FAERS Safety Report 16219177 (Version 8)
Quarter: 2020Q2

REPORT INFORMATION
  Report Type: Spontaneous
  Country: US (occurrence: US)
  Receive Date: 20190419
  Receipt Date: 20200611
  Transmission Date: 20200713
  Serious: Yes (Other)
  Sender: FDA-Public Use
  Company Number: US-ACTELION-A-NJ2019-187900

PATIENT
  Age: 38 Year
  Sex: Female

DRUGS (7)
  1. UPTRAVI [Suspect]
     Active Substance: SELEXIPAG
     Dosage: 1000 MCG, QPM
     Route: 048
  2. OPSUMIT [Suspect]
     Active Substance: MACITENTAN
     Indication: PULMONARY ARTERIAL HYPERTENSION
     Dosage: 10 MG, QD
     Route: 048
     Dates: start: 20180424
  3. UPTRAVI [Suspect]
     Active Substance: SELEXIPAG
     Indication: PULMONARY ARTERIAL HYPERTENSION
     Dosage: 400 MCG, BID
     Route: 048
     Dates: start: 20190228
  4. UPTRAVI [Suspect]
     Active Substance: SELEXIPAG
     Dosage: 600 MCG, BID
     Route: 048
  5. UPTRAVI [Suspect]
     Active Substance: SELEXIPAG
     Dosage: 800 MCG, QAM
     Route: 048
  6. UPTRAVI [Suspect]
     Active Substance: SELEXIPAG
     Dosage: 800 UNK
     Route: 048
  7. UPTRAVI [Suspect]
     Active Substance: SELEXIPAG
     Dosage: 1000 MCG, BID
     Route: 048

REACTIONS (15)
  - Pancreatitis [Unknown]
  - Headache [Not Recovered/Not Resolved]
  - Weight increased [Unknown]
  - Flushing [Unknown]
  - Nausea [Unknown]
  - Ascites [Unknown]
  - Diarrhoea [Unknown]
  - Condition aggravated [Unknown]
  - Pain in jaw [Unknown]
  - Chest pain [Unknown]
  - Product dose omission [Unknown]
  - Infected cyst [Unknown]
  - Epistaxis [Unknown]
  - Pain [Not Recovered/Not Resolved]
  - Pulmonary arterial hypertension [Unknown]

NARRATIVE: CASE EVENT DATE: 20190403
